FAERS Safety Report 7369418-1 (Version None)
Quarter: 2011Q1

REPORT INFORMATION
  Report Type: 
  Country: None (occurrence: None)
  Receive Date: 20110323
  Receipt Date: 20110317
  Transmission Date: 20110831
  Serious: Yes (Death)
  Sender: FDA-Public Use
  Company Number: US-ROCHE-767000

PATIENT
  Age: 39 Year
  Sex: Female

DRUGS (2)
  1. CLONAZEPAM [Suspect]
     Dosage: ROUTE: INGESTION, ONGOING STATUS UNKNOWN AT THE TIME OF DEATH
     Route: 048
  2. AMITRIPTYLINE (NON-ROCHE/NON-COMPARATOR) [Suspect]
     Dosage: ROUTE: INGESTION, ONGOING STATUS UNKNOWN AT THE TIME OF DEATH
     Route: 065

REACTIONS (2)
  - TOXICITY TO VARIOUS AGENTS [None]
  - COMPLETED SUICIDE [None]
